FAERS Safety Report 12796950 (Version 1)
Quarter: 2016Q3

REPORT INFORMATION
  Report Type: Report from Study
  Country: GR (occurrence: GR)
  Receive Date: 20160929
  Receipt Date: 20160929
  Transmission Date: 20161109
  Serious: Yes (Hospitalization)
  Sender: FDA-Public Use
  Company Number: GR-ABBVIE-16K-066-1740010-00

PATIENT
  Age: 71 Year
  Sex: Female
  Weight: 75 kg

DRUGS (1)
  1. DUODOPA [Suspect]
     Active Substance: CARBIDOPA\LEVODOPA
     Indication: PARKINSON^S DISEASE
     Dosage: MD: 11 ML;CRD: 5.2 ML/H;ED: 2 ML
     Route: 048
     Dates: start: 201309

REACTIONS (4)
  - Blood pressure inadequately controlled [Unknown]
  - Blood pressure decreased [Unknown]
  - Vertigo [Recovered/Resolved]
  - Syncope [Recovered/Resolved]

NARRATIVE: CASE EVENT DATE: 20160915
